FAERS Safety Report 5664813-0 (Version None)
Quarter: 2008Q1

REPORT INFORMATION
  Report Type: 
  Country: None (occurrence: None)
  Receive Date: 20080314
  Receipt Date: 20080304
  Transmission Date: 20080703
  Serious: Yes (Other)
  Sender: FDA-Public Use
  Company Number: GB-PFIZER INC-2008020842

PATIENT
  Sex: Female

DRUGS (2)
  1. ISTIN [Suspect]
  2. RAMIPRIL [Concomitant]

REACTIONS (3)
  - ANXIETY [None]
  - PANIC REACTION [None]
  - WITHDRAWAL SYNDROME [None]
